FAERS Safety Report 6868587-7 (Version None)
Quarter: 2010Q3

REPORT INFORMATION
  Report Type: 
  Country: None (occurrence: None)
  Receive Date: 20100722
  Receipt Date: 20080602
  Transmission Date: 20110219
  Serious: Yes (Other)
  Sender: FDA-Public Use
  Company Number: US-PFIZER INC-2008047114

PATIENT
  Sex: Female
  Weight: 72.6 kg

DRUGS (2)
  1. CHANTIX [Suspect]
     Indication: EX-TOBACCO USER
     Dates: start: 20071201
  2. BUPROPION HYDROCHLORIDE [Suspect]
     Indication: SUICIDAL IDEATION
     Route: 048
     Dates: start: 20080101

REACTIONS (2)
  - FEELING GUILTY [None]
  - SUICIDAL IDEATION [None]
